FAERS Safety Report 12244308 (Version 1)
Quarter: 2016Q2

REPORT INFORMATION
  Report Type: Spontaneous
  Country: US (occurrence: US)
  Receive Date: 20160407
  Receipt Date: 20160407
  Transmission Date: 20160815
  Serious: Yes (Hospitalization)
  Sender: FDA-Public Use
  Company Number: US-ASTRAZENECA-2016SE35221

PATIENT
  Age: 28401 Day
  Sex: Female

DRUGS (1)
  1. TUDORZA PRESSAIR [Suspect]
     Active Substance: ACLIDINIUM BROMIDE
     Indication: CHRONIC OBSTRUCTIVE PULMONARY DISEASE
     Route: 055
     Dates: start: 2014

REACTIONS (4)
  - Product quality issue [Unknown]
  - Dyspnoea [Unknown]
  - Drug dose omission [Unknown]
  - Infection [Unknown]

NARRATIVE: CASE EVENT DATE: 20160323
